FAERS Safety Report 7397409-3 (Version None)
Quarter: 2011Q2

REPORT INFORMATION
  Report Type: 
  Country: None (occurrence: None)
  Receive Date: 20110406
  Receipt Date: 20110328
  Transmission Date: 20111010
  Serious: Yes (Hospitalization)
  Sender: FDA-Public Use
  Company Number: US-ROCHE-768309

PATIENT
  Sex: Male
  Weight: 83 kg

DRUGS (19)
  1. LOVENOX [Concomitant]
  2. ZANTAC [Concomitant]
  3. OXALIPLATIN [Suspect]
     Route: 042
     Dates: start: 20110308
  4. ACETAMINOPHEN [Concomitant]
  5. OMEPRAZOLE [Concomitant]
     Dosage: DRUG REPORTED AS OMEPRAZOLE
  6. DEXAMETHASONE [Concomitant]
  7. BEVACIZUMAB [Suspect]
     Route: 042
     Dates: start: 20110308
  8. BENAZEPRIL HYDROCHLORIDE [Concomitant]
  9. VYTORIN [Concomitant]
  10. LORAZEPAM [Concomitant]
  11. COMPAZINE [Concomitant]
  12. METOPROLOL [Concomitant]
  13. FIBERCON [Concomitant]
  14. ZOFRAN [Concomitant]
  15. CAPECITABINE [Suspect]
     Dosage: REPORETD AS 1500 MG IN AM 2000 MG IN PM, FREQUENCY AS 14 DAYS
     Route: 048
     Dates: start: 20110308, end: 20110321
  16. POTASSIUM CHLORIDE [Concomitant]
  17. TAMSULOSIN HCL [Concomitant]
  18. FUROSEMIDE [Concomitant]
  19. AMLODIPINE [Concomitant]

REACTIONS (1)
  - DIVERTICULAR PERFORATION [None]
